FAERS Safety Report 9179165 (Version 1)
Quarter: 2013Q1

REPORT INFORMATION
  Report Type: Spontaneous
  Country: US (occurrence: US)
  Receive Date: 20130321
  Receipt Date: 20130321
  Transmission Date: 20140127
  Serious: Yes (Death, Hospitalization)
  Sender: FDA-Public Use
  Company Number: US-GLAXOSMITHKLINE-A1015963A

PATIENT
  Age: 77 Year
  Sex: Male

DRUGS (3)
  1. ADVAIR [Suspect]
     Indication: CHRONIC OBSTRUCTIVE PULMONARY DISEASE
     Dosage: 1PUFF TWICE PER DAY
     Route: 055
     Dates: start: 201103, end: 20130203
  2. CARVEDILOL [Concomitant]
  3. IBUPROFEN [Concomitant]

REACTIONS (4)
  - Pneumonia [Fatal]
  - Emphysema [Fatal]
  - Atrial fibrillation [Unknown]
  - Chronic obstructive pulmonary disease [Unknown]
